FAERS Safety Report 6719927-0 (Version None)
Quarter: 2010Q2

REPORT INFORMATION
  Report Type: 
  Country: None (occurrence: None)
  Receive Date: 20100507
  Receipt Date: 20100423
  Transmission Date: 20101027
  Serious: Yes (Hospitalization)
  Sender: FDA-Public Use
  Company Number: DSA_33351_2009

PATIENT
  Age: 85 Year
  Sex: Male

DRUGS (4)
  1. ENALAPRIL MALEATE [Suspect]
     Indication: HYPERTENSION
     Dosage: 10 MG QD ORAL, 2.5 MG QD ORAL
     Route: 048
     Dates: end: 20090108
  2. ENALAPRIL MALEATE [Suspect]
     Indication: HYPERTENSION
     Dosage: 10 MG QD ORAL, 2.5 MG QD ORAL
     Route: 048
     Dates: start: 20090110
  3. METOPROLOL TARTRATE [Suspect]
     Indication: HYPERTENSION
     Dosage: 50 MG QD ORAL
     Route: 048
  4. SPIRONOLACTONE [Suspect]
     Indication: HYPERTENSION
     Dosage: 25 MG QD ORAL
     Route: 048

REACTIONS (3)
  - DIZZINESS [None]
  - HYPOTENSION [None]
  - VISUAL IMPAIRMENT [None]
